FAERS Safety Report 13500861 (Version 1)
Quarter: 2017Q2

REPORT INFORMATION
  Report Type: Spontaneous
  Country: US (occurrence: US)
  Receive Date: 20170501
  Receipt Date: 20170501
  Transmission Date: 20170830
  Serious: No
  Sender: FDA-Public Use
  Company Number: US-ROCHE-1829811

PATIENT
  Sex: Male

DRUGS (1)
  1. ESBRIET [Suspect]
     Active Substance: PIRFENIDONE
     Indication: PULMONARY FIBROSIS
     Dosage: CURRENT DOSE 1 PILL THREE TIMES A DAY WITH MEALS
     Route: 065
     Dates: start: 20160909

REACTIONS (1)
  - Dizziness [Not Recovered/Not Resolved]
